FAERS Safety Report 7637089-2 (Version None)
Quarter: 2011Q3

REPORT INFORMATION
  Report Type: 
  Country: None (occurrence: None)
  Receive Date: 20110726
  Receipt Date: 20110712
  Transmission Date: 20111222
  Serious: Yes (Hospitalization, Other)
  Sender: FDA-Public Use
  Company Number: IL-MYLANLABS-2011S1013148

PATIENT
  Age: 13 Year
  Sex: Female
  Weight: 36 kg

DRUGS (6)
  1. ULTIVA [Suspect]
     Indication: ACCIDENTAL OVERDOSE
     Dosage: OVER 50 MINUTES
  2. FENTANYL [Suspect]
     Route: 042
  3. MIDAZOLAM HCL [Suspect]
     Route: 042
  4. ROCURONIUM BROMIDE [Suspect]
     Route: 042
  5. PROPOFOL [Concomitant]
     Indication: GENERAL ANAESTHESIA
  6. SEVOFLURANE [Suspect]
     Route: 055

REACTIONS (6)
  - MIOSIS [None]
  - INCORRECT DOSE ADMINISTERED [None]
  - OVERDOSE [None]
  - DELAYED RECOVERY FROM ANAESTHESIA [None]
  - APNOEA [None]
  - SOMNOLENCE [None]
